FAERS Safety Report 6904024-1 (Version None)
Quarter: 2010Q3

REPORT INFORMATION
  Report Type: 
  Country: None (occurrence: None)
  Receive Date: 20100804
  Receipt Date: 20090305
  Transmission Date: 20110219
  Serious: Yes (Other)
  Sender: FDA-Public Use
  Company Number: US-PFIZER INC-2009150530

PATIENT
  Sex: Female
  Weight: 54.431 kg

DRUGS (5)
  1. LYRICA [Suspect]
     Indication: NEURALGIA
     Dosage: 50 MG, 3X/DAY
     Dates: start: 20070101
  2. PERCOCET [Interacting]
     Indication: ANALGESIC THERAPY
     Dosage: UNK
  3. PREDNISONE [Concomitant]
     Dosage: 10 MG, 1X/DAY
  4. ALPRAZOLAM [Concomitant]
     Indication: SLEEP DISORDER
     Dosage: 1 MG, UNK
  5. STOOL SOFTENER [Concomitant]
     Dosage: UNK

REACTIONS (5)
  - DRUG INTERACTION [None]
  - DRY MOUTH [None]
  - GENERALISED OEDEMA [None]
  - HEADACHE [None]
  - PAIN IN EXTREMITY [None]
